FAERS Safety Report 23560806 (Version 1)
Quarter: 2024Q1

REPORT INFORMATION
  Report Type: Spontaneous
  Country: US (occurrence: US)
  Receive Date: 20240223
  Receipt Date: 20240223
  Transmission Date: 20240410
  Serious: No
  Sender: FDA-Public Use
  Company Number: US-GE HEALTHCARE-2024CSU000746

PATIENT
  Age: 64 Year
  Sex: Male
  Weight: 99.773 kg

DRUGS (1)
  1. OPTISON [Suspect]
     Active Substance: HUMAN ALBUMIN MICROSPHERES\PERFLUTREN
     Indication: Echocardiogram
     Dosage: 2 ML, TOTAL
     Route: 042
     Dates: start: 20240122, end: 20240122

REACTIONS (1)
  - Hot flush [Recovered/Resolved]

NARRATIVE: CASE EVENT DATE: 20240122
